FAERS Safety Report 21854251 (Version 1)
Quarter: 2023Q1

REPORT INFORMATION
  Report Type: Spontaneous
  Country: DE (occurrence: DE)
  Receive Date: 20230112
  Receipt Date: 20230112
  Transmission Date: 20230418
  Serious: No
  Sender: FDA-Public Use
  Company Number: DE-PFIZER INC-202300010777

PATIENT
  Age: 29 Year
  Sex: Female

DRUGS (1)
  1. PAXLOVID [Suspect]
     Active Substance: NIRMATRELVIR\RITONAVIR
     Dosage: INCORRECTLY TOOK TWO TABLETS IN THE MORNING AND EVENING INSTEAD OF THREE TABLETS
     Dates: start: 20221229, end: 20230102

REACTIONS (4)
  - Taste disorder [Unknown]
  - COVID-19 [Unknown]
  - Disease recurrence [Unknown]
  - Incorrect dose administered [Unknown]

NARRATIVE: CASE EVENT DATE: 20221229
